FAERS Safety Report 16762901 (Version 6)
Quarter: 2020Q1

REPORT INFORMATION
  Report Type: Report from Study
  Country: PL (occurrence: PL)
  Receive Date: 20190902
  Receipt Date: 20200324
  Transmission Date: 20200409
  Serious: Yes (Life-Threatening, Hospitalization, Other)
  Sender: FDA-Public Use
  Company Number: PL-ROCHE-2394443

PATIENT
  Age: 70 Year
  Sex: Male
  Weight: 75 kg

DRUGS (34)
  1. ATRODIL [Concomitant]
     Indication: CHRONIC OBSTRUCTIVE PULMONARY DISEASE
     Dosage: 20 OTHER
     Route: 048
     Dates: start: 2015
  2. CLEMASTINUM [CLEMASTINE] [Concomitant]
     Indication: PREMEDICATION
     Route: 042
     Dates: start: 20190730, end: 20190730
  3. EXACYL [Concomitant]
     Active Substance: TRANEXAMIC ACID
     Indication: THROMBOCYTOPENIA
     Dosage: AMPULE
     Route: 042
     Dates: start: 20190826, end: 20190827
  4. CLEXANE [Concomitant]
     Active Substance: ENOXAPARIN SODIUM
     Route: 058
     Dates: start: 20191009, end: 20191102
  5. ZARZIO [Concomitant]
     Active Substance: FILGRASTIM
     Indication: NEUTROPENIA
     Route: 058
     Dates: start: 20191025, end: 20191030
  6. RITUXIMAB. [Suspect]
     Active Substance: RITUXIMAB
     Indication: DIFFUSE LARGE B-CELL LYMPHOMA
     Dosage: DATE OF MOST RECENT DOSE OF RITUXIMAB (720 MG) PRIOR TO SAE ONSET: 20 AUG 2019
     Route: 042
     Dates: start: 20190530
  7. PREDNISONE. [Suspect]
     Active Substance: PREDNISONE
     Indication: DIFFUSE LARGE B-CELL LYMPHOMA
     Dosage: ON DAYS 1-5 OF EVERY 21-DAY CYCLE FOR 6 CYCLES?DATE OF MOST RECENT DOSE OF PREDNISONE (100 MG) PRIOR
     Route: 048
     Dates: start: 20190530
  8. ATORVASTATIN CALCIUM. [Concomitant]
     Active Substance: ATORVASTATIN CALCIUM
     Indication: HYPERCHOLESTEROLAEMIA
     Route: 048
     Dates: start: 2015
  9. ACCOFIL [Concomitant]
     Active Substance: FILGRASTIM
     Indication: NEUTROPENIA
     Dosage: 48 OTHER
     Route: 058
     Dates: start: 20190806, end: 20190807
  10. HELICID [OMEPRAZOLE] [Concomitant]
     Active Substance: OMEPRAZOLE
     Route: 042
     Dates: start: 20191010, end: 20191026
  11. DOXORUBICIN [Suspect]
     Active Substance: DOXORUBICIN
     Indication: DIFFUSE LARGE B-CELL LYMPHOMA
     Dosage: DATE OF MOST RECENT DOSE OF DOXORUBICIN (96 MG) PRIOR TO SAE ONSET: 20 AUG 2019
     Route: 042
     Dates: start: 20190531
  12. EUPHYLLIN [THEOPHYLLINE] [Concomitant]
     Indication: CHRONIC OBSTRUCTIVE PULMONARY DISEASE
     Route: 048
     Dates: start: 2015
  13. ZOFENIL [Concomitant]
     Active Substance: ZOFENOPRIL
     Indication: HYPERTENSION
     Route: 048
     Dates: start: 2015
  14. DEXAVEN [Concomitant]
     Active Substance: DEXAMETHASONE
     Indication: PREMEDICATION
     Route: 042
     Dates: start: 20190730, end: 20190730
  15. LONQUEX [Concomitant]
     Active Substance: LIPEGFILGRASTIM
     Route: 058
     Dates: start: 20190821, end: 20190821
  16. ACCOFIL [Concomitant]
     Active Substance: FILGRASTIM
     Route: 058
     Dates: start: 20191011, end: 20191014
  17. CONTROLOC [Concomitant]
     Active Substance: PANTOPRAZOLE SODIUM
     Indication: PROPHYLAXIS
     Route: 048
     Dates: start: 20190826, end: 20190827
  18. CLEXANE [Concomitant]
     Active Substance: ENOXAPARIN SODIUM
     Route: 058
     Dates: start: 20191009, end: 20191102
  19. PLACEBO [Suspect]
     Active Substance: UNSPECIFIED INGREDIENT
     Indication: DIFFUSE LARGE B-CELL LYMPHOMA
     Dosage: 6:42:37 PM: DATE OF MOST RECENT DOSE OF PLACEBO PRIOR TO SAE ONSET: 20 AUG 2019
     Route: 042
     Dates: start: 20190531
  20. NEOPARIN [Concomitant]
     Active Substance: ENOXAPARIN SODIUM
     Indication: ATRIAL FIBRILLATION
     Route: 058
     Dates: start: 20190606
  21. PARACETAMOLUM [Concomitant]
     Active Substance: ACETAMINOPHEN
     Indication: MULTIPLE ORGAN DYSFUNCTION SYNDROME
     Route: 042
     Dates: start: 20191023, end: 20191025
  22. ZOFRAN [Concomitant]
     Active Substance: ONDANSETRON HYDROCHLORIDE
     Indication: PROPHYLAXIS OF NAUSEA AND VOMITING
     Route: 042
     Dates: start: 20190730, end: 20190730
  23. ACICLOVIRUM [Concomitant]
     Indication: INFECTION PROPHYLAXIS
     Route: 048
     Dates: start: 20190524
  24. PANTOPRAZOLE [Concomitant]
     Active Substance: PANTOPRAZOLE
     Indication: PROPHYLAXIS
     Route: 048
     Dates: start: 20190606
  25. LONQUEX [Concomitant]
     Active Substance: LIPEGFILGRASTIM
     Indication: PROPHYLAXIS
     Route: 058
     Dates: start: 20190731, end: 20190731
  26. EUTHYROX [Concomitant]
     Active Substance: LEVOTHYROXINE SODIUM
     Indication: HYPOTHYROIDISM
     Route: 048
     Dates: start: 2011
  27. EUTHYROX [Concomitant]
     Active Substance: LEVOTHYROXINE SODIUM
     Route: 048
     Dates: start: 20191023, end: 20191102
  28. BISEPTOL [Concomitant]
     Active Substance: SULFAMETHOXAZOLE\TRIMETHOPRIM
     Indication: INFECTION PROPHYLAXIS
     Route: 048
     Dates: start: 20190601
  29. APO-DOXAN [Concomitant]
     Indication: HYPERTENSION
     Route: 048
     Dates: start: 2010
  30. CYCLONAMINE [Concomitant]
     Active Substance: ETHAMSYLATE
     Indication: THROMBOCYTOPENIA
     Dosage: AMPULE
     Route: 042
     Dates: start: 20190826, end: 20190827
  31. VINCRISTINE [Suspect]
     Active Substance: VINCRISTINE
     Indication: DIFFUSE LARGE B-CELL LYMPHOMA
     Dosage: DATE OF MOST RECENT DOSE (1MG/1ML) OF VINCRISTINE PRIOR TO SAE ONSET: 20 AUG 2019
     Route: 042
     Dates: start: 20190531
  32. CYCLOPHOSPHAMIDE. [Suspect]
     Active Substance: CYCLOPHOSPHAMIDE
     Indication: DIFFUSE LARGE B-CELL LYMPHOMA
     Dosage: DATE OF MOST RECENT DOSE OF CYCLOPHOSPHAMIDE (1440 MG) PRIOR TO SAE ONSET: 20 AUG 2019
     Route: 042
     Dates: start: 20190531
  33. BIBLOC [Concomitant]
     Active Substance: BISOPROLOL
     Indication: HYPERTENSION
     Route: 048
     Dates: start: 2015
  34. PARACETAMOLUM [Concomitant]
     Active Substance: ACETAMINOPHEN
     Indication: PREMEDICATION
     Route: 048
     Dates: start: 20190730, end: 20190730

REACTIONS (3)
  - Multiple organ dysfunction syndrome [Not Recovered/Not Resolved]
  - Pneumonia [Not Recovered/Not Resolved]
  - Febrile neutropenia [Not Recovered/Not Resolved]

NARRATIVE: CASE EVENT DATE: 20190826
